FAERS Safety Report 13642666 (Version 7)
Quarter: 2018Q1

REPORT INFORMATION
  Report Type: Report from Study
  Country: AU (occurrence: AU)
  Receive Date: 20170612
  Receipt Date: 20180228
  Transmission Date: 20180508
  Serious: Yes (Disabling, Other)
  Sender: FDA-Public Use
  Company Number: AU-KADMON PHARMACEUTICALS, LLC-KAD201706-000764

PATIENT
  Age: 55 Year
  Sex: Female
  Weight: 87 kg

DRUGS (19)
  1. SOFOSBUVIR [Suspect]
     Active Substance: SOFOSBUVIR
     Indication: HEPATITIS C
     Route: 048
     Dates: start: 20140123, end: 20140710
  2. VITAMIN D [Concomitant]
     Active Substance: CHOLECALCIFEROL
  3. MAGNESIUM [Concomitant]
     Active Substance: MAGNESIUM
  4. VITAMIN B3 [Concomitant]
     Active Substance: NIACIN
  5. WITCH HAZEL CREAM [Concomitant]
     Indication: RASH
     Route: 061
     Dates: start: 20140202
  6. WITCH HAZEL CREAM [Concomitant]
     Indication: HERPES ZOSTER
  7. ESCITALOPRAM [Concomitant]
     Active Substance: ESCITALOPRAM OXALATE
     Indication: ANXIETY
  8. ESCITALOPRAM [Concomitant]
     Active Substance: ESCITALOPRAM OXALATE
     Indication: DEPRESSION
     Dates: start: 201310
  9. PANADEINE [Concomitant]
     Active Substance: ACETAMINOPHEN\CODEINE PHOSPHATE
     Indication: HEADACHE
     Dates: start: 20140129
  10. L-LYSINE [Concomitant]
     Active Substance: LYSINE
     Indication: PROPHYLAXIS
     Dates: start: 2003
  11. L-LYSINE [Concomitant]
     Active Substance: LYSINE
     Indication: HERPES ZOSTER
  12. L-CARNITINE [Concomitant]
     Active Substance: LEVOCARNITINE
  13. NITROLIGUAL PUMP SPRAY [Concomitant]
     Indication: CHEST PAIN
     Dates: start: 20140225, end: 20140225
  14. ASPIRIN. [Concomitant]
     Active Substance: ASPIRIN
     Indication: CHEST PAIN
     Dates: start: 20140225, end: 20140225
  15. ZINC. [Concomitant]
     Active Substance: ZINC
  16. NUROFEN [Concomitant]
     Active Substance: IBUPROFEN
     Indication: HEADACHE
     Dates: start: 20140129
  17. MULTIVITAMIN [Concomitant]
     Active Substance: VITAMINS
  18. CALCIUM [Concomitant]
     Active Substance: CALCIUM
  19. RIBAVIRIN 200 MG [Suspect]
     Active Substance: RIBAVIRIN
     Indication: HEPATITIS C
     Route: 048
     Dates: start: 20140123, end: 20140710

REACTIONS (6)
  - Impaired work ability [Unknown]
  - Mitochondrial toxicity [Unknown]
  - Fatigue [Not Recovered/Not Resolved]
  - Acquired mitochondrial DNA deletion [Unknown]
  - Myalgia [Not Recovered/Not Resolved]
  - Arthralgia [Not Recovered/Not Resolved]

NARRATIVE: CASE EVENT DATE: 20141223
